FAERS Safety Report 4865154-1 (Version None)
Quarter: 2005Q4

REPORT INFORMATION
  Report Type: 
  Country: None (occurrence: None)
  Receive Date: 20051220
  Receipt Date: 20051109
  Transmission Date: 20060501
  Serious: Yes (Other)
  Sender: FDA-Public Use
  Company Number: US200511000053

PATIENT
  Age: 79 Year
  Sex: Male

DRUGS (2)
  1. CYMBALTA [Suspect]
     Dosage: 30 MG,
  2. FENTANYL [Concomitant]

REACTIONS (3)
  - COMPRESSION FRACTURE [None]
  - FALL [None]
  - LOSS OF CONSCIOUSNESS [None]
